FAERS Safety Report 21843815 (Version 1)
Quarter: 2023Q1

REPORT INFORMATION
  Report Type: Spontaneous
  Country: None (occurrence: US)
  Receive Date: 20230110
  Receipt Date: 20230110
  Transmission Date: 20230417
  Serious: Yes (Other)
  Sender: FDA-Public Use
  Company Number: US-P+L Development, LLC-2136556

PATIENT
  Sex: Male

DRUGS (1)
  1. DOCUSATE SODIUM\SENNOSIDES [Suspect]
     Active Substance: DOCUSATE SODIUM\SENNOSIDES
     Route: 048
     Dates: start: 20221117, end: 20221122

REACTIONS (1)
  - Rectal haemorrhage [Recovered/Resolved]
